FAERS Safety Report 7586330-3 (Version None)
Quarter: 2011Q2

REPORT INFORMATION
  Report Type: 
  Country: None (occurrence: None)
  Receive Date: 20110630
  Receipt Date: 20110630
  Transmission Date: 20111010
  Serious: Yes (Other)
  Sender: FDA-Public Use
  Company Number: None

PATIENT
  Age: 76 Year
  Sex: Male

DRUGS (3)
  1. REVLIMID [Suspect]
     Indication: MULTIPLE MYELOMA
     Dosage: REVLIMID 15 MG DAILY X21D/28D ORALLY
     Route: 048
     Dates: start: 20090701, end: 20110301
  2. APAP TAB [Concomitant]
  3. ACYCLOVIR [Suspect]

REACTIONS (6)
  - HEADACHE [None]
  - HYPOAESTHESIA ORAL [None]
  - DIZZINESS [None]
  - AGEUSIA [None]
  - ASTHENIA [None]
  - SOMNOLENCE [None]
